FAERS Safety Report 9651556 (Version 1)
Quarter: 2013Q4

REPORT INFORMATION
  Report Type: Spontaneous
  Country: US (occurrence: US)
  Receive Date: 20131029
  Receipt Date: 20131029
  Transmission Date: 20140711
  Serious: No
  Sender: FDA-Public Use
  Company Number: US-ENDO PHARMACEUTICALS INC.-HCDA20110018

PATIENT
  Age: 51 Year
  Sex: Male

DRUGS (1)
  1. HYDROCODONE/ACETAMINOPHEN 7.5MG/750MG [Suspect]
     Indication: PAIN
     Dosage: 22.5 MG/2250 MG
     Route: 048
     Dates: start: 2009

REACTIONS (3)
  - Headache [Unknown]
  - Insomnia [Unknown]
  - Hypersensitivity [Unknown]
